FAERS Safety Report 10131462 (Version 3)
Quarter: 2014Q4

REPORT INFORMATION
  Report Type: Report from Study
  Country: US (occurrence: US)
  Receive Date: 20140428
  Receipt Date: 20141110
  Transmission Date: 20150528
  Serious: Yes (Hospitalization, Other)
  Sender: FDA-Public Use
  Company Number: PHEH2014US008210

PATIENT
  Sex: Male
  Weight: 116 kg

DRUGS (3)
  1. TOBI [Suspect]
     Active Substance: TOBRAMYCIN
     Indication: CYSTIC FIBROSIS
     Dosage: 300 MG/ 5 ML, BID (TREATMENT TEMP. INTERRUPTED)
     Route: 055
  2. TOBI [Suspect]
     Active Substance: TOBRAMYCIN
     Dosage: 300 MG/ 5 ML, BID
     Route: 055
  3. TOBI PODHALER [Suspect]
     Active Substance: TOBRAMYCIN
     Indication: CYSTIC FIBROSIS
     Dosage: 112 MG, BID
     Route: 055
     Dates: start: 2013, end: 2013

REACTIONS (8)
  - Cystic fibrosis [Not Recovered/Not Resolved]
  - Fear [Unknown]
  - Lung disorder [Unknown]
  - Malaise [Not Recovered/Not Resolved]
  - Productive cough [Unknown]
  - Fatigue [Unknown]
  - Condition aggravated [Not Recovered/Not Resolved]
  - Product physical issue [Not Recovered/Not Resolved]
